FAERS Safety Report 7780632-3 (Version None)
Quarter: 2011Q3

REPORT INFORMATION
  Report Type: 
  Country: None (occurrence: None)
  Receive Date: 20110927
  Receipt Date: 20101230
  Transmission Date: 20111222
  Serious: No
  Sender: FDA-Public Use
  Company Number: US-BRISTOL-MYERS SQUIBB COMPANY-15452170

PATIENT
  Age: 46 Year
  Sex: Female

DRUGS (3)
  1. BROMPHENIRAMINE MALEATE [Concomitant]
  2. ALLEGRA [Concomitant]
  3. AVAPRO [Suspect]
     Indication: HYPERTENSION
     Dosage: 1 ST DOSE
     Dates: start: 20101220

REACTIONS (1)
  - HYPOAESTHESIA [None]
